FAERS Safety Report 5105518-4 (Version None)
Quarter: 2006Q3

REPORT INFORMATION
  Report Type: 
  Country: None (occurrence: None)
  Receive Date: 20060915
  Receipt Date: 20060901
  Transmission Date: 20061208
  Serious: Yes (Death, Hospitalization)
  Sender: FDA-Public Use
  Company Number: US-BRISTOL-MYERS SQUIBB COMPANY-13496393

PATIENT
  Age: 8 Year
  Sex: Male

DRUGS (3)
  1. STAVUDINE [Suspect]
     Indication: HIV INFECTION
     Dates: start: 20040501
  2. NEVIRAPINE [Suspect]
     Indication: HIV INFECTION
     Dosage: 4 MG/KG DAILY FOR 14DAYS, THEN 4 MG/KG TWICE DAILY.
     Dates: start: 20040501
  3. LAMIVUDINE [Suspect]
     Indication: HIV INFECTION
     Dates: start: 20040501

REACTIONS (2)
  - SEPSIS [None]
  - STEVENS-JOHNSON SYNDROME [None]
